FAERS Safety Report 18152415 (Version 2)
Quarter: 2020Q4

REPORT INFORMATION
  Report Type: Spontaneous
  Country: US (occurrence: US)
  Receive Date: 20200814
  Receipt Date: 20201007
  Transmission Date: 20210113
  Serious: Yes (Disabling)
  Sender: FDA-Public Use
  Company Number: US-TEVA-2020-US-1814287

PATIENT
  Age: 63 Year
  Sex: Female
  Weight: 108.96 kg

DRUGS (11)
  1. DOCETAXEL. [Suspect]
     Active Substance: DOCETAXEL
     Route: 065
     Dates: start: 20150715, end: 20150826
  2. TAXOTERE [Suspect]
     Active Substance: DOCETAXEL
     Indication: BREAST CANCER
     Dosage: EVERY 3 WEEKS 3 CYCLES
     Route: 065
     Dates: start: 20150715, end: 20150826
  3. CARVEDILOL. [Concomitant]
     Active Substance: CARVEDILOL
  4. AMLODIPINE/HYDROCHLOROTHIAZIDE [Concomitant]
     Active Substance: AMLODIPINE BESYLATE\HYDROCHLOROTHIAZIDE
  5. ISOSORBIDE MONONITRATE. [Concomitant]
     Active Substance: ISOSORBIDE MONONITRATE
  6. CARBOPLATIN. [Concomitant]
     Active Substance: CARBOPLATIN
     Indication: BREAST CANCER
     Dosage: EVERY 3 WEEKS FOR 3 CYCLES
     Route: 065
     Dates: start: 20150715, end: 20150826
  7. ENALAPRIL [Concomitant]
     Active Substance: ENALAPRIL
  8. DOCETAXEL. [Suspect]
     Active Substance: DOCETAXEL
     Indication: BREAST CANCER
     Dosage: EVERY 3 WEEKS 3 CYCLES
     Route: 065
     Dates: start: 20150715, end: 20150826
  9. DOCETAXEL. [Suspect]
     Active Substance: DOCETAXEL
     Dosage: FORM OF ADMIN: INJECTION CONCENTRATE
     Route: 065
     Dates: start: 20150715, end: 20150826
  10. DOCEFREZ [Suspect]
     Active Substance: DOCETAXEL ANHYDROUS
     Indication: BREAST CANCER
     Dosage: EVERY 3 WEEKS FOR 3 CYCLES
     Route: 065
     Dates: start: 20150715, end: 20150826
  11. HERCEPTIN [Concomitant]
     Active Substance: TRASTUZUMAB
     Indication: BREAST CANCER
     Dosage: EVERY 3 WEEKS FOR 3 CYCLES
     Route: 065
     Dates: start: 20150715, end: 20150826

REACTIONS (1)
  - Alopecia [Not Recovered/Not Resolved]

NARRATIVE: CASE EVENT DATE: 201507
